FAERS Safety Report 9880584 (Version 1)
Quarter: 2014Q1

REPORT INFORMATION
  Report Type: Report from Study
  Country: CA (occurrence: CA)
  Receive Date: 20140207
  Receipt Date: 20140207
  Transmission Date: 20141002
  Serious: Yes (Hospitalization, Other)
  Sender: FDA-Public Use
  Company Number: CA-ROCHE-1344270

PATIENT
  Age: 55 Year
  Sex: Female
  Weight: 49.9 kg

DRUGS (8)
  1. RITUXAN [Suspect]
     Indication: RHEUMATOID ARTHRITIS
     Dosage: FREQUENCY:  DAY 1, DAY 15
     Route: 042
     Dates: start: 20120716
  2. ACETAMINOPHEN [Concomitant]
     Indication: PREMEDICATION
     Route: 048
     Dates: start: 20120716
  3. SULFASALAZINE [Concomitant]
  4. EURO-FOLIC [Concomitant]
  5. ACTONEL [Concomitant]
  6. PREDNISONE [Concomitant]
  7. METHYLPREDNISOLONE [Concomitant]
     Route: 042
     Dates: start: 20120616
  8. METHOTREXATE [Concomitant]

REACTIONS (2)
  - Femur fracture [Recovered/Resolved]
  - Fall [Unknown]
